FAERS Safety Report 9063711 (Version 1)
Quarter: 2013Q1

REPORT INFORMATION
  Report Type: Spontaneous
  Country: US (occurrence: US)
  Receive Date: 20130131
  Receipt Date: 20130131
  Transmission Date: 20140127
  Serious: No
  Sender: FDA-Public Use
  Company Number: US-ABBOTT-12P-163-1017730-00

PATIENT
  Sex: Female
  Weight: 64.92 kg

DRUGS (4)
  1. HUMIRA [Suspect]
     Indication: RHEUMATOID ARTHRITIS
     Route: 058
  2. HUMIRA [Suspect]
     Indication: COLITIS ULCERATIVE
  3. LIALDA [Concomitant]
     Indication: COLITIS ULCERATIVE
  4. MERCAPTOPURINE [Concomitant]
     Indication: COLITIS ULCERATIVE

REACTIONS (3)
  - Incorrect dose administered [Unknown]
  - Injection site pain [Not Recovered/Not Resolved]
  - Injection site pain [Not Recovered/Not Resolved]
